FAERS Safety Report 25965422 (Version 1)
Quarter: 2025Q4

REPORT INFORMATION
  Report Type: Spontaneous
  Country: US (occurrence: US)
  Receive Date: 20251027
  Receipt Date: 20251027
  Transmission Date: 20260118
  Serious: No
  Sender: SANOFI AVENTIS
  Company Number: US-SA-2025SA316382

PATIENT
  Age: 75 Year
  Sex: Female
  Weight: 88.18 kg

DRUGS (3)
  1. DUPIXENT [Suspect]
     Active Substance: DUPILUMAB
     Indication: Dermatitis atopic
     Dosage: 300 MG, QOW
     Route: 058
     Dates: start: 202201
  2. NEMLUVIO [Suspect]
     Active Substance: NEMOLIZUMAB-ILTO
     Dosage: 2 DF, 1X
     Dates: start: 202509, end: 202509
  3. NEMLUVIO [Suspect]
     Active Substance: NEMOLIZUMAB-ILTO
     Dosage: 1 DF, Q4W
     Dates: start: 2025, end: 2025

REACTIONS (2)
  - Headache [Recovering/Resolving]
  - Arthralgia [Recovering/Resolving]
